FAERS Safety Report 7379685-6 (Version None)
Quarter: 2011Q1

REPORT INFORMATION
  Report Type: 
  Country: None (occurrence: None)
  Receive Date: 20110329
  Receipt Date: 20110323
  Transmission Date: 20110831
  Serious: No
  Sender: FDA-Public Use
  Company Number: US-PFIZER INC-2011019817

PATIENT
  Sex: Female
  Weight: 52 kg

DRUGS (2)
  1. EFFEXOR XR [Suspect]
     Indication: ANXIETY
     Dosage: 37.5 MG, 1X/DAY
     Route: 048
     Dates: start: 20110119, end: 20110125
  2. SYNTHROID [Concomitant]
     Indication: HYPOTHYROIDISM
     Dosage: 10 MG, 1X/DAY
     Route: 048

REACTIONS (5)
  - BLOOD PRESSURE INCREASED [None]
  - ANXIETY [None]
  - NAUSEA [None]
  - HEART RATE INCREASED [None]
  - DYSPNOEA [None]
